FAERS Safety Report 21394536 (Version 1)
Quarter: 2022Q3

REPORT INFORMATION
  Report Type: Report from Study
  Country: US (occurrence: US)
  Receive Date: 20220930
  Receipt Date: 20220930
  Transmission Date: 20221027
  Serious: Yes (Hospitalization)
  Sender: FDA-Public Use
  Company Number: US-GILEAD-2022-0596191

PATIENT
  Age: 9 Year
  Sex: Male

DRUGS (20)
  1. AZTREONAM LYSINE [Suspect]
     Active Substance: AZTREONAM LYSINE
     Indication: Respiratory disorder
     Dosage: 75 MG, TID FOR 28 DAYS ON AND 28 DAYS OFF
     Route: 055
     Dates: start: 20181228, end: 20220511
  2. TYLENOL [Concomitant]
     Active Substance: ACETAMINOPHEN
  3. TOBRAMYCIN [Concomitant]
     Active Substance: TOBRAMYCIN
  4. SPIRIVA [Concomitant]
     Active Substance: TIOTROPIUM BROMIDE MONOHYDRATE
  5. SODIUM CHLORIDE [Concomitant]
     Active Substance: SODIUM CHLORIDE
  6. QVAR [Concomitant]
     Active Substance: BECLOMETHASONE DIPROPIONATE
  7. OFLOXACIN [Concomitant]
     Active Substance: OFLOXACIN
  8. NORDITROPIN [Concomitant]
     Active Substance: SOMATROPIN
  9. MONTELUKAST [Concomitant]
     Active Substance: MONTELUKAST SODIUM
  10. GAMINEX [Concomitant]
  11. FLUCONAZOLE [Concomitant]
     Active Substance: FLUCONAZOLE
  12. FAMOTIDINE [Concomitant]
     Active Substance: FAMOTIDINE
  13. CYPROHEPTADINE [Concomitant]
     Active Substance: CYPROHEPTADINE
  14. CETIRIZINE [Concomitant]
     Active Substance: CETIRIZINE HYDROCHLORIDE
  15. BENADRYL [Concomitant]
     Active Substance: DIPHENHYDRAMINE HYDROCHLORIDE
  16. AZITHROMYCIN [Concomitant]
     Active Substance: AZITHROMYCIN
  17. AUGMENTIN [Concomitant]
     Active Substance: AMOXICILLIN\CLAVULANATE POTASSIUM
  18. ALBUTEROL SULFATE [Concomitant]
     Active Substance: ALBUTEROL SULFATE
  19. ACYCLOVIR [Concomitant]
     Active Substance: ACYCLOVIR
  20. ACITRETIN [Concomitant]
     Active Substance: ACITRETIN

REACTIONS (1)
  - Cystic fibrosis respiratory infection suppression [Unknown]
